FAERS Safety Report 6723244-2 (Version None)
Quarter: 2010Q2

REPORT INFORMATION
  Report Type: 
  Country: None (occurrence: None)
  Receive Date: 20100513
  Receipt Date: 20100507
  Transmission Date: 20101027
  Serious: Yes (Hospitalization, Other)
  Sender: FDA-Public Use
  Company Number: BR-ABBOTT-09P-020-0568088-00

PATIENT
  Sex: Male
  Weight: 66 kg

DRUGS (8)
  1. HUMIRA [Suspect]
     Indication: RHEUMATOID ARTHRITIS
     Route: 058
     Dates: start: 20060101
  2. UNKNOWN MAGISTRAL FORMULA [Concomitant]
     Indication: DRUG USE FOR UNKNOWN INDICATION
     Route: 048
     Dates: start: 19890101
  3. UNKNOWN MAGISTRAL FORMULA [Concomitant]
     Route: 048
  4. ANTI-INFLAMMATORY [Concomitant]
     Indication: DRUG USE FOR UNKNOWN INDICATION
  5. PREDNISONE/PIROXICAM/FAMOTIDINE [Concomitant]
     Indication: RHEUMATOID ARTHRITIS
     Dosage: COMBINED FORMULA CONSISTING OF :PREDNISONE/PIROXICAM/FAMOTIDINE
     Route: 048
     Dates: start: 19950101
  6. PREDNISONE/PIROXICAM/FAMOTIDINE [Concomitant]
     Indication: PAIN
     Dosage: COMBINED FORMULA CONSISTING OF :PREDNISONE/PIROXICAM/FAMOTIDINE
     Route: 048
  7. PIROXICAM/FAMOTIDINE [Concomitant]
     Indication: RHEUMATOID ARTHRITIS
     Route: 048
     Dates: start: 19950101
  8. PIROXICAM/FAMOTIDINE [Concomitant]
     Indication: PAIN

REACTIONS (7)
  - INFLAMMATION [None]
  - INGUINAL HERNIA [None]
  - LOCALISED INFECTION [None]
  - OSTEOPOROSIS [None]
  - POISONING [None]
  - SKIN DISCOLOURATION [None]
  - THROMBOSIS [None]
